FAERS Safety Report 10143439 (Version 1)
Quarter: 2014Q2

REPORT INFORMATION
  Report Type: Spontaneous
  Country: US (occurrence: None)
  Receive Date: 20140429
  Receipt Date: 20140429
  Transmission Date: 20141212
  Serious: Yes (Hospitalization)
  Sender: FDA-Public Use
  Company Number: None

PATIENT
  Age: 55 Year
  Sex: Male
  Weight: 119.5 kg

DRUGS (1)
  1. FENTANYL [Suspect]
     Indication: PAIN
     Dosage: 50 MCG  PER HOUR  TOP
     Route: 061
     Dates: start: 20121031, end: 20140201

REACTIONS (3)
  - Nausea [None]
  - Vomiting [None]
  - Therapy change [None]
